FAERS Safety Report 5594662-3 (Version None)
Quarter: 2008Q1

REPORT INFORMATION
  Report Type: 
  Country: None (occurrence: None)
  Receive Date: 20080117
  Receipt Date: 20080107
  Transmission Date: 20080703
  Serious: Yes (Hospitalization)
  Sender: FDA-Public Use
  Company Number: IT-AMGEN-US259837

PATIENT
  Age: 52 Year
  Sex: Male

DRUGS (3)
  1. ENBREL [Suspect]
     Indication: DRUG USE FOR UNKNOWN INDICATION
     Dosage: LYOPHILIZED (25 MG)
     Route: 058
     Dates: start: 20050512, end: 20070101
  2. ENBREL [Suspect]
     Dosage: PRE-FILLED SYRINGE (25MG)
     Route: 058
     Dates: start: 20070101, end: 20070831
  3. METHOTREXATE [Concomitant]
     Dosage: 10MG
     Route: 030

REACTIONS (1)
  - LEISHMANIASIS [None]
